FAERS Safety Report 11456075 (Version 1)
Quarter: 2015Q3

REPORT INFORMATION
  Report Type: Spontaneous
  Country: US (occurrence: US)
  Receive Date: 20150903
  Receipt Date: 20150903
  Transmission Date: 20151125
  Serious: Yes (Hospitalization, Other)
  Sender: FDA-Public Use
  Company Number: US-SUNOVION-2015SUN000036

PATIENT
  Age: 44 Year
  Sex: Female

DRUGS (3)
  1. LITHIUM. [Suspect]
     Active Substance: LITHIUM
     Dosage: UNK
  2. SAPHRIS [Concomitant]
     Active Substance: ASENAPINE MALEATE
     Dosage: UNK
  3. LATUDA [Suspect]
     Active Substance: LURASIDONE HYDROCHLORIDE
     Dosage: 120 MG, QD
     Route: 048

REACTIONS (6)
  - Tremor [Unknown]
  - Suicidal ideation [Unknown]
  - Incoherent [Unknown]
  - Antipsychotic drug level increased [Unknown]
  - Drug administration error [Unknown]
  - Feeling jittery [Unknown]
